FAERS Safety Report 13271739 (Version 4)
Quarter: 2017Q2

REPORT INFORMATION
  Report Type: Spontaneous
  Country: GB (occurrence: GB)
  Receive Date: 20170227
  Receipt Date: 20170427
  Transmission Date: 20170830
  Serious: Yes (Hospitalization)
  Sender: FDA-Public Use
  Company Number: GB-BIOGEN-2017BI00362484

PATIENT
  Sex: Male

DRUGS (1)
  1. AVONEX [Suspect]
     Active Substance: INTERFERON BETA-1A
     Indication: MULTIPLE SCLEROSIS
     Route: 030
     Dates: start: 20120508

REACTIONS (5)
  - Multiple sclerosis relapse [Unknown]
  - Avian influenza [Unknown]
  - Ill-defined disorder [Unknown]
  - Gastrointestinal infection [Unknown]
  - Sepsis [Unknown]
